FAERS Safety Report 15736341 (Version 1)
Quarter: 2018Q4

REPORT INFORMATION
  Report Type: Spontaneous
  Country: US (occurrence: US)
  Receive Date: 20181218
  Receipt Date: 20181218
  Transmission Date: 20190205
  Serious: No
  Sender: FDA-Public Use
  Company Number: None

PATIENT
  Age: 75 Year
  Sex: Male
  Weight: 72.45 kg

DRUGS (1)
  1. DALIRESP [Suspect]
     Active Substance: ROFLUMILAST
     Indication: CHRONIC OBSTRUCTIVE PULMONARY DISEASE
     Dosage: ?          QUANTITY:28 TABLET(S);?
     Route: 048

REACTIONS (4)
  - Weight decreased [None]
  - Burning sensation [None]
  - Diarrhoea [None]
  - Defaecation disorder [None]

NARRATIVE: CASE EVENT DATE: 20181218
